FAERS Safety Report 8401923-9 (Version None)
Quarter: 2012Q2

REPORT INFORMATION
  Report Type: 
  Country: None (occurrence: None)
  Receive Date: 20120601
  Receipt Date: 20120528
  Transmission Date: 20120825
  Serious: Yes (Other)
  Sender: FDA-Public Use
  Company Number: MX-PFIZER INC-2012129005

PATIENT
  Age: 63 Year
  Sex: Female
  Weight: 65 kg

DRUGS (2)
  1. LINEZOLID [Suspect]
     Indication: INFECTION PROPHYLAXIS
     Dosage: 600 MG, 2X/DAY
     Route: 042
     Dates: start: 20120516
  2. INVANZ [Concomitant]
     Indication: INFECTION PROPHYLAXIS
     Dosage: 1 G, 1X/DAY
     Route: 042
     Dates: start: 20120516

REACTIONS (3)
  - DIARRHOEA HAEMORRHAGIC [None]
  - HEADACHE [None]
  - NAUSEA [None]
